FAERS Safety Report 8104824-9 (Version None)
Quarter: 2012Q1

REPORT INFORMATION
  Report Type: 
  Country: None (occurrence: None)
  Receive Date: 20120130
  Receipt Date: 20120126
  Transmission Date: 20120608
  Serious: Yes (Other)
  Sender: FDA-Public Use
  Company Number: IT-PFIZER INC-2011309442

PATIENT
  Age: 40 Year
  Sex: Male

DRUGS (2)
  1. UNASYN [Suspect]
     Indication: ACINETOBACTER INFECTION
     Dosage: 4.5 G, TOTAL DOSE
     Route: 042
     Dates: start: 20111210, end: 20111210
  2. COLISTIN [Concomitant]
     Dosage: UNK
     Dates: start: 20111201, end: 20111210

REACTIONS (3)
  - HYPERTENSION [None]
  - RASH [None]
  - HYPERPYREXIA [None]
